FAERS Safety Report 4304790-8 (Version None)
Quarter: 2004Q1

REPORT INFORMATION
  Report Type: 
  Country: None (occurrence: None)
  Receive Date: 20040226
  Receipt Date: 20031210
  Transmission Date: 20041129
  Serious: No
  Sender: FDA-Public Use
  Company Number: US-GLAXOSMITHKLINE-A0442653A

PATIENT
  Sex: Female

DRUGS (1)
  1. WELLBUTRIN [Suspect]
     Indication: DEPRESSION
     Dosage: 300MG PER DAY
     Route: 048
     Dates: start: 20031130, end: 20031130

REACTIONS (6)
  - ABDOMINAL PAIN UPPER [None]
  - INSOMNIA [None]
  - MOUTH ULCERATION [None]
  - NERVOUSNESS [None]
  - NIGHT SWEATS [None]
  - PRURITUS [None]
